FAERS Safety Report 14072098 (Version 3)
Quarter: 2018Q3

REPORT INFORMATION
  Report Type: Spontaneous
  Country: US (occurrence: US)
  Receive Date: 20171010
  Receipt Date: 20180917
  Transmission Date: 20181010
  Serious: No
  Sender: FDA-Public Use
  Company Number: US-SA-2017SA159332

PATIENT
  Sex: Female

DRUGS (1)
  1. DUPIXENT [Suspect]
     Active Substance: DUPILUMAB
     Indication: DERMATITIS
     Dosage: 300 MG,QOW
     Route: 058
     Dates: start: 20170516

REACTIONS (6)
  - Photophobia [Unknown]
  - Sleep disorder [Unknown]
  - Conjunctivitis [Unknown]
  - Ocular hyperaemia [Unknown]
  - Weight increased [Unknown]
  - Lacrimation increased [Unknown]
